FAERS Safety Report 7870217 (Version 11)
Quarter: 2013Q4

REPORT INFORMATION
  Report Type: Report from Study
  Country: US (occurrence: US)
  Receive Date: 20110324
  Receipt Date: 20131119
  Transmission Date: 20140711
  Serious: Yes (Other)
  Sender: FDA-Public Use
  Company Number: US-PFIZER INC-2011064902

PATIENT
  Age: 78 Year
  Sex: Female
  Weight: 53.06 kg

DRUGS (12)
  1. CHANTIX [Suspect]
     Indication: SMOKING CESSATION THERAPY
     Dosage: 0.5 MG, 1X/DAY
     Route: 048
     Dates: start: 2010, end: 201012
  2. CHANTIX [Suspect]
     Dosage: 0.5 MG, DAILY
     Route: 048
     Dates: start: 201012, end: 201012
  3. CHANTIX [Suspect]
     Dosage: 1 MG, DAILY
     Route: 048
     Dates: start: 201012, end: 201012
  4. CHANTIX [Suspect]
     Dosage: 1 MG, 2X/DAY
     Route: 048
     Dates: start: 201012, end: 20101226
  5. CHANTIX [Suspect]
     Dosage: UNK
     Route: 048
  6. BUPROPION [Suspect]
     Dosage: UNK
  7. CYMBALTA [Suspect]
     Dosage: UNK
  8. HYDROCODONE [Concomitant]
     Indication: BACK DISORDER
     Dosage: 7.5 MG, AS NEEDED
     Route: 048
  9. LORAZEPAM [Concomitant]
     Indication: ANXIETY
     Dosage: 0.5 MG, AS NEEDED
  10. CLONAZEPAM [Concomitant]
     Indication: ANXIETY
     Dosage: 0.5 MG, 3X/DAY
  11. BUSPAR [Concomitant]
     Indication: ANXIETY
     Dosage: UNK
     Dates: start: 20110204
  12. AMBIEN [Concomitant]
     Indication: SLEEP DISORDER
     Dosage: UNK
     Dates: start: 20110204

REACTIONS (19)
  - Depression [Not Recovered/Not Resolved]
  - Anxiety [Not Recovered/Not Resolved]
  - Agitation [Not Recovered/Not Resolved]
  - Disturbance in attention [Not Recovered/Not Resolved]
  - Formication [Not Recovered/Not Resolved]
  - Brain oedema [Unknown]
  - Brain neoplasm [Unknown]
  - Amnesia [Not Recovered/Not Resolved]
  - Headache [Not Recovered/Not Resolved]
  - Nausea [Not Recovered/Not Resolved]
  - Dysgeusia [Unknown]
  - Insomnia [Not Recovered/Not Resolved]
  - Decreased interest [Unknown]
  - Feeling abnormal [Unknown]
  - Restless legs syndrome [Unknown]
  - Visual impairment [Unknown]
  - Vision blurred [Unknown]
  - Headache [Unknown]
  - Feeling abnormal [Unknown]
